FAERS Safety Report 8479823-8 (Version None)
Quarter: 2012Q2

REPORT INFORMATION
  Report Type: 
  Country: None (occurrence: None)
  Receive Date: 20120629
  Receipt Date: 20120619
  Transmission Date: 20120825
  Serious: Yes (Hospitalization)
  Sender: FDA-Public Use
  Company Number: ZA-ELI_LILLY_AND_COMPANY-ZA201206006067

PATIENT
  Sex: Male

DRUGS (2)
  1. HUMALOG [Suspect]
     Indication: DIABETES MELLITUS
     Dosage: 18 U, TID
     Route: 058
     Dates: start: 20110802
  2. HUMULIN N [Suspect]
     Indication: DIABETES MELLITUS
     Dosage: 24 U, BID
     Route: 058
     Dates: start: 20110802

REACTIONS (2)
  - HYPERGLYCAEMIA [None]
  - ABSCESS LIMB [None]
